FAERS Safety Report 8483118-6 (Version None)
Quarter: 2012Q2

REPORT INFORMATION
  Report Type: 
  Country: None (occurrence: None)
  Receive Date: 20120625
  Receipt Date: 20120613
  Transmission Date: 20120825
  Serious: Yes (Other)
  Sender: FDA-Public Use
  Company Number: DKLU1081396

PATIENT
  Age: 63 Year
  Sex: Male

DRUGS (4)
  1. TRILEPTAL [Concomitant]
  2. PHENOBARBITAL TAB [Concomitant]
  3. ONFI [Suspect]
     Indication: EPILEPSY
     Dosage: 10 MG MILLIGRAM(S), AT BEDTIME, ORAL
     Route: 048
     Dates: end: 20120501
  4. LAMOTRIGINE [Concomitant]

REACTIONS (9)
  - FALL [None]
  - CONFUSIONAL STATE [None]
  - LACERATION [None]
  - LOSS OF CONSCIOUSNESS [None]
  - ROAD TRAFFIC ACCIDENT [None]
  - PRODUCT QUALITY ISSUE [None]
  - ANTICONVULSANT DRUG LEVEL DECREASED [None]
  - DRUG INEFFECTIVE [None]
  - CONVULSION [None]
